FAERS Safety Report 5323324-2 (Version None)
Quarter: 2007Q2

REPORT INFORMATION
  Report Type: 
  Country: None (occurrence: None)
  Receive Date: 20070223
  Receipt Date: 20060807
  Transmission Date: 20071010
  Serious: Yes (Hospitalization)
  Sender: FDA-Public Use
  Company Number: WAES 0310USA00327

PATIENT
  Age: 55 Year
  Sex: Male

DRUGS (7)
  1. ZOCOR [Suspect]
     Dosage: PO
     Route: 047
  2. BIAXIN [Suspect]
  3. ACTOS [Concomitant]
  4. LOPRESSOR [Concomitant]
  5. PRINIVIL [Concomitant]
  6. TIAZAC [Concomitant]
  7. INSULIN, BIPHASIC ISOPHANE (INJE [Concomitant]

REACTIONS (9)
  - DIABETES MELLITUS [None]
  - DIARRHOEA [None]
  - DRUG INTERACTION [None]
  - HELICOBACTER INFECTION [None]
  - HYPERTENSION [None]
  - NAUSEA [None]
  - RENAL FAILURE [None]
  - RHABDOMYOLYSIS [None]
  - VOMITING [None]
